FAERS Safety Report 9098291 (Version 2)
Quarter: 2013Q1

REPORT INFORMATION
  Report Type: Spontaneous
  Country: JP (occurrence: JP)
  Receive Date: 20130213
  Receipt Date: 20130307
  Transmission Date: 20140127
  Serious: Yes (Hospitalization)
  Sender: FDA-Public Use
  Company Number: JP-ASTRAZENECA-2013SE08583

PATIENT
  Age: 63 Year
  Sex: Male
  Weight: 47 kg

DRUGS (10)
  1. CRESTOR [Suspect]
     Indication: HYPERLIPIDAEMIA
     Route: 048
     Dates: start: 20121220, end: 20130124
  2. PLAVIX [Suspect]
     Indication: MYOCARDIAL ISCHAEMIA
     Route: 048
     Dates: start: 20121220, end: 20130124
  3. SEIBULE [Suspect]
     Indication: DIABETES MELLITUS
     Route: 048
     Dates: start: 20121221, end: 20130124
  4. SIGMART [Suspect]
     Indication: ANGINA PECTORIS
     Route: 048
     Dates: start: 20121220, end: 20130124
  5. BAYASPIRIN [Concomitant]
     Indication: ANGINA PECTORIS
     Route: 048
  6. TAKEPRON [Concomitant]
     Indication: GASTROOESOPHAGEAL REFLUX DISEASE
     Route: 048
  7. MYONAL [Concomitant]
     Indication: BACK PAIN
     Route: 048
     Dates: end: 20130124
  8. CALTAN [Concomitant]
     Indication: BLOOD PHOSPHORUS INCREASED
     Route: 048
  9. ALESION [Concomitant]
     Indication: PRURITUS
     Route: 048
     Dates: start: 20121221, end: 20130124
  10. ALINAMIN-F [Concomitant]
     Indication: VITAMIN B COMPLEX DEFICIENCY
     Route: 048
     Dates: start: 20121229

REACTIONS (1)
  - Hepatitis acute [Unknown]
